FAERS Safety Report 18179360 (Version 2)
Quarter: 2020Q3

REPORT INFORMATION
  Report Type: Spontaneous
  Country: US (occurrence: US)
  Receive Date: 20200820
  Receipt Date: 20200924
  Transmission Date: 20201103
  Serious: Yes (Death, Other)
  Sender: FDA-Public Use
  Company Number: US-TEVA-2020-US-1816881

PATIENT
  Age: 44 Year
  Sex: Female

DRUGS (14)
  1. ACTIQ [Suspect]
     Active Substance: FENTANYL CITRATE
     Indication: PRODUCT USED FOR UNKNOWN INDICATION
     Route: 065
  2. OXYCODONE [Suspect]
     Active Substance: OXYCODONE
     Route: 065
  3. CODEINE [Suspect]
     Active Substance: CODEINE
     Route: 065
  4. TYLENOL [Suspect]
     Active Substance: ACETAMINOPHEN
     Route: 065
  5. OXYCONTIN [Suspect]
     Active Substance: OXYCODONE HYDROCHLORIDE
     Route: 065
  6. TRAMADOL. [Suspect]
     Active Substance: TRAMADOL
     Route: 065
  7. FENTANYL. [Suspect]
     Active Substance: FENTANYL
     Indication: PRODUCT USED FOR UNKNOWN INDICATION
     Route: 065
  8. OXYCONTIN [Suspect]
     Active Substance: OXYCODONE HYDROCHLORIDE
     Route: 065
  9. HYDROCODONE [Suspect]
     Active Substance: HYDROCODONE
     Route: 065
  10. ACETAMINOPHEN W/OXYCODONE [Suspect]
     Active Substance: ACETAMINOPHEN\OXYCODONE HYDROCHLORIDE
     Route: 065
  11. HYDROCODONE AND ACETAMINOPHEN [Suspect]
     Active Substance: ACETAMINOPHEN\HYDROCODONE
     Route: 065
  12. OXYCODONE W/ASPIRIN [Suspect]
     Active Substance: ASPIRIN\OXYCODONE HYDROCHLORIDE
     Route: 065
  13. ACETAMINOPHEN. [Suspect]
     Active Substance: ACETAMINOPHEN
     Route: 065
  14. ENULOSE [Suspect]
     Active Substance: LACTULOSE
     Route: 065

REACTIONS (8)
  - Renal failure [Unknown]
  - Imprisonment [Unknown]
  - Homeless [Unknown]
  - Loss of employment [Unknown]
  - Confusional state [Unknown]
  - Death [Fatal]
  - Drug dependence [Unknown]
  - Hepatic failure [Unknown]

NARRATIVE: CASE EVENT DATE: 201404
